FAERS Safety Report 8139066-4 (Version None)
Quarter: 2012Q1

REPORT INFORMATION
  Report Type: 
  Country: None (occurrence: None)
  Receive Date: 20120215
  Receipt Date: 20120213
  Transmission Date: 20120608
  Serious: Yes (Other)
  Sender: FDA-Public Use
  Company Number: JP-PFIZER INC-2012022065

PATIENT
  Age: 24 Year
  Sex: Female

DRUGS (3)
  1. GASMOTIN [Concomitant]
     Dosage: 15 MG, UNK
     Dates: start: 20101129
  2. MIGSIS [Concomitant]
     Dosage: 10 MG, UNK
     Route: 048
  3. ZOLOFT [Suspect]
     Indication: DEPRESSIVE SYMPTOM
     Dosage: 25 MG/DAY
     Route: 048
     Dates: start: 20101129, end: 20101213

REACTIONS (2)
  - HEADACHE [None]
  - PSYCHIATRIC SYMPTOM [None]
